FAERS Safety Report 19465778 (Version 2)
Quarter: 2021Q2

REPORT INFORMATION
  Report Type: Spontaneous
  Country: NL (occurrence: NL)
  Receive Date: 20210626
  Receipt Date: 20210626
  Transmission Date: 20210717
  Serious: Yes (Death)
  Sender: FDA-Public Use
  Company Number: NL-TEVA-2021-NL-1925202

PATIENT
  Age: 86 Year
  Sex: Female
  Weight: 63 kg

DRUGS (2)
  1. CALCIUMCARBONAAT KAUWTABLET 1,25G (500MG CA) / CALCI CHEW KAUWTABLET [Concomitant]
     Active Substance: CALCIUM CARBONATE
     Dosage: THERAPY START AND END DATE: ASKU
  2. TEMAZEPAM TABLET 10MG / BRAND NAME NOT SPECIFIED [Suspect]
     Active Substance: TEMAZEPAM
     Dosage: THERAPY END DATE: ASKU
     Dates: start: 2021

REACTIONS (1)
  - Pulmonary embolism [Fatal]

NARRATIVE: CASE EVENT DATE: 20210314
